FAERS Safety Report 4976239-3 (Version None)
Quarter: 2006Q2

REPORT INFORMATION
  Report Type: 
  Country: None (occurrence: None)
  Receive Date: 20060419
  Receipt Date: 20051124
  Transmission Date: 20061013
  Serious: Yes (Other)
  Sender: FDA-Public Use
  Company Number: PHBS2005JP17404

PATIENT
  Age: 12 Year
  Sex: Female

DRUGS (2)
  1. SANDIMMUNE [Suspect]
     Indication: FOCAL GLOMERULOSCLEROSIS
     Dosage: 140 MG/D
     Route: 048
     Dates: start: 19971117, end: 20000920
  2. NEORAL [Suspect]
     Indication: FOCAL GLOMERULOSCLEROSIS
     Dosage: 140 MG/D
     Route: 048
     Dates: start: 20000921, end: 20051209

REACTIONS (3)
  - DISEASE RECURRENCE [None]
  - NEPHROPATHY [None]
  - RENAL DISORDER [None]
